FAERS Safety Report 10022554 (Version 1)
Quarter: 2014Q1

REPORT INFORMATION
  Report Type: Spontaneous
  Country: US (occurrence: None)
  Receive Date: 20140318
  Receipt Date: 20140318
  Transmission Date: 20141002
  Serious: Yes (Hospitalization)
  Sender: FDA-Public Use
  Company Number: None

PATIENT
  Age: 43 Year
  Sex: Male
  Weight: 72.12 kg

DRUGS (6)
  1. CYCLOPHOSPHAMIDE [Suspect]
     Dates: end: 20140302
  2. DOXORUBICIN HYDROCHLORIDE [Suspect]
     Dates: end: 20140301
  3. ETOPOSIDE (VP-16) [Suspect]
     Dates: end: 20140301
  4. PREDNISONE [Suspect]
     Dates: end: 20140302
  5. RITUXIMAB [Suspect]
     Dates: end: 20140304
  6. VINCRISTINE SULFATE [Suspect]
     Dates: end: 20140301

REACTIONS (1)
  - Platelet count decreased [None]
